FAERS Safety Report 19369300 (Version 2)
Quarter: 2021Q3

REPORT INFORMATION
  Report Type: Report from Study
  Country: US (occurrence: US)
  Receive Date: 20210603
  Receipt Date: 20210826
  Transmission Date: 20211014
  Serious: No
  Sender: FDA-Public Use
  Company Number: US-BIOVITRUM-2021US2316

PATIENT
  Age: 58 Year
  Sex: Female

DRUGS (1)
  1. KINERET [Suspect]
     Active Substance: ANAKINRA
     Indication: PYREXIA
     Route: 058
     Dates: start: 201903

REACTIONS (6)
  - Off label use [Unknown]
  - Peripheral swelling [Unknown]
  - Rash macular [Unknown]
  - Depression [Unknown]
  - Asthenia [Unknown]
  - Amnesia [Unknown]

NARRATIVE: CASE EVENT DATE: 201903
